FAERS Safety Report 8233514-7 (Version None)
Quarter: 2012Q1

REPORT INFORMATION
  Report Type: 
  Country: None (occurrence: None)
  Receive Date: 20120326
  Receipt Date: 20120316
  Transmission Date: 20120608
  Serious: Yes (Hospitalization)
  Sender: FDA-Public Use
  Company Number: US-US-EMD SERONO, INC.-7098596

PATIENT
  Sex: Male

DRUGS (1)
  1. REBIF [Suspect]
     Indication: MULTIPLE SCLEROSIS
     Route: 058
     Dates: start: 20110309

REACTIONS (6)
  - DEPRESSION [None]
  - HEART RATE IRREGULAR [None]
  - VOMITING [None]
  - BACK PAIN [None]
  - MULTIPLE SCLEROSIS RELAPSE [None]
  - THYROID FUNCTION TEST ABNORMAL [None]
